FAERS Safety Report 9456834 (Version 1)
Quarter: 2013Q3

REPORT INFORMATION
  Report Type: Spontaneous
  Country: DE (occurrence: DE)
  Receive Date: 20130813
  Receipt Date: 20130813
  Transmission Date: 20140515
  Serious: Yes (Hospitalization)
  Sender: FDA-Public Use
  Company Number: DE-ACTAVIS-2013-14266

PATIENT
  Age: 27 Year
  Sex: Male

DRUGS (2)
  1. ACYCLOVIR (UNKNOWN) [Suspect]
     Indication: HERPES ZOSTER
     Dosage: 750 MG, TID
     Route: 041
     Dates: start: 20130609, end: 20130611
  2. NACL [Concomitant]
     Indication: PRODUCT USED FOR UNKNOWN INDICATION
     Dosage: 500 ML
     Route: 065

REACTIONS (1)
  - Renal impairment [Recovering/Resolving]
